FAERS Safety Report 16767846 (Version 1)
Quarter: 2019Q3

REPORT INFORMATION
  Report Type: Spontaneous
  Country: US (occurrence: US)
  Receive Date: 20190903
  Receipt Date: 20190903
  Transmission Date: 20191005
  Serious: Yes (Hospitalization)
  Sender: FDA-Public Use
  Company Number: US-PERRIGO-19US010349

PATIENT
  Age: 18 Year
  Sex: Female

DRUGS (1)
  1. NAPROXEN. [Suspect]
     Active Substance: NAPROXEN
     Indication: INTENTIONAL PRODUCT MISUSE
     Dosage: 1500 TO 2500 MG, SINGLE
     Route: 048

REACTIONS (5)
  - Blood bilirubin abnormal [Recovered/Resolved]
  - Toxicity to various agents [Recovered/Resolved]
  - Metabolic acidosis [Recovered/Resolved]
  - Leukocytosis [Recovered/Resolved]
  - Altered state of consciousness [Recovered/Resolved]
